FAERS Safety Report 20106311 (Version 1)
Quarter: 2021Q4

REPORT INFORMATION
  Report Type: Spontaneous
  Country: KR (occurrence: KR)
  Receive Date: 20211124
  Receipt Date: 20211124
  Transmission Date: 20220303
  Serious: Yes (Death, Hospitalization, Other)
  Sender: FDA-Public Use
  Company Number: KR-AMGEN-KORSL2021176682

PATIENT
  Age: 62 Year
  Sex: Male

DRUGS (37)
  1. FILGRASTIM [Suspect]
     Active Substance: FILGRASTIM
     Indication: Product used for unknown indication
     Dosage: 150 UG, QD
     Route: 042
     Dates: start: 20161219, end: 20161219
  2. FILGRASTIM [Suspect]
     Active Substance: FILGRASTIM
     Dosage: 300 UG, QD
     Route: 042
     Dates: start: 20170107, end: 20170107
  3. APREPITANT [Concomitant]
     Active Substance: APREPITANT
     Indication: Product used for unknown indication
     Dosage: 150 MG, QD
     Route: 042
     Dates: start: 20161209, end: 20161209
  4. APREPITANT [Concomitant]
     Active Substance: APREPITANT
     Dosage: 150 MG, QD
     Route: 042
     Dates: start: 20161228, end: 20161228
  5. ALMAGATE [Concomitant]
     Active Substance: ALMAGATE
     Indication: Product used for unknown indication
     Dosage: 15 ML, QD
     Route: 048
     Dates: start: 20161228, end: 20170106
  6. ALPRAZOLAM [Concomitant]
     Active Substance: ALPRAZOLAM
     Indication: Product used for unknown indication
     Dosage: 0.13 MG, QD
     Route: 048
  7. BUDESONIDE [Concomitant]
     Active Substance: BUDESONIDE
     Indication: Product used for unknown indication
     Dosage: 100 UG, QD
     Route: 048
     Dates: start: 20161019, end: 20170106
  8. CYCLOPHOSPHAMIDE [Concomitant]
     Active Substance: CYCLOPHOSPHAMIDE
     Indication: Product used for unknown indication
     Dosage: 1890 MG, QD
     Route: 042
     Dates: start: 20161228, end: 20161228
  9. CYCLOPHOSPHAMIDE [Concomitant]
     Active Substance: CYCLOPHOSPHAMIDE
     Dosage: 1910 MG, QD
     Route: 042
     Dates: start: 20161209, end: 20161209
  10. DEXAMETHASONE [Concomitant]
     Active Substance: DEXAMETHASONE
     Indication: Product used for unknown indication
     Dosage: 4 MG, QD
     Route: 048
     Dates: start: 20161210, end: 20161212
  11. DEXAMETHASONE [Concomitant]
     Active Substance: DEXAMETHASONE
     Dosage: 4 MG, QD
     Route: 048
     Dates: start: 20161228, end: 20161228
  12. DEXAMETHASONE [Concomitant]
     Active Substance: DEXAMETHASONE
     Dosage: 12 MG, QD
     Route: 048
     Dates: start: 20161209, end: 20161209
  13. DEXAMETHASONE [Concomitant]
     Active Substance: DEXAMETHASONE
     Dosage: 12 MG, QD
     Route: 048
     Dates: start: 20161228, end: 20161228
  14. DOXORUBICIN [Concomitant]
     Active Substance: DOXORUBICIN
     Indication: Product used for unknown indication
     Dosage: 75 MG, QD
     Route: 042
     Dates: start: 20161228, end: 20161228
  15. DOXORUBICIN [Concomitant]
     Active Substance: DOXORUBICIN
     Dosage: 76 MG, QD
     Route: 042
     Dates: start: 20161209, end: 20161209
  16. ESCITALOPRAM [Concomitant]
     Active Substance: ESCITALOPRAM OXALATE
     Indication: Product used for unknown indication
     Dosage: 5 MG, QD
     Route: 048
     Dates: start: 20151215, end: 20170106
  17. INDACATEROL [Concomitant]
     Active Substance: INDACATEROL
     Indication: Product used for unknown indication
     Dosage: 1 DF, QD
     Route: 065
     Dates: start: 20161019, end: 20170106
  18. LACTULOSE [Concomitant]
     Active Substance: LACTULOSE
     Indication: Product used for unknown indication
     Dosage: 15 ML, QD
     Route: 048
     Dates: start: 20161228, end: 20170106
  19. LORAZEPAM [Concomitant]
     Active Substance: LORAZEPAM
     Indication: Product used for unknown indication
     Dosage: 1 MG, QD
     Route: 048
     Dates: start: 20160707, end: 20170106
  20. MIRTAZAPINE [Concomitant]
     Active Substance: MIRTAZAPINE
     Indication: Product used for unknown indication
     Dosage: 7.5 MG, QD
     Route: 048
     Dates: start: 20161228, end: 20170106
  21. OMEPRAZOLE [Concomitant]
     Active Substance: OMEPRAZOLE
     Indication: Product used for unknown indication
     Dosage: 20 MG, QD
     Route: 048
     Dates: start: 20161228, end: 20170106
  22. PALONOSETRON [Concomitant]
     Active Substance: PALONOSETRON
     Indication: Product used for unknown indication
     Dosage: 5 ML, QD
     Route: 042
     Dates: start: 20161209, end: 20161209
  23. PALONOSETRON [Concomitant]
     Active Substance: PALONOSETRON
     Dosage: 5 ML, QD
     Route: 042
     Dates: start: 20161228, end: 20161228
  24. PANTOPRAZOLE [Concomitant]
     Active Substance: PANTOPRAZOLE
     Indication: Product used for unknown indication
     Dosage: 20 MG, QD
     Route: 048
     Dates: start: 20161019, end: 20170106
  25. PIPERACILLIN [Concomitant]
     Active Substance: PIPERACILLIN
     Indication: Product used for unknown indication
     Dosage: 4.5 G, QD
     Route: 042
     Dates: start: 20170107, end: 20170109
  26. PREDNISOLONE [Concomitant]
     Active Substance: PREDNISOLONE
     Indication: Product used for unknown indication
     Dosage: 10 MG, QD
     Route: 065
     Dates: start: 20161102, end: 20170106
  27. PROPACETAMOL [Concomitant]
     Active Substance: PROPACETAMOL
     Indication: Product used for unknown indication
     Dosage: 1 G, QD
     Route: 042
     Dates: start: 20170107, end: 20170107
  28. RANITIDINE [Concomitant]
     Active Substance: RANITIDINE
     Indication: Product used for unknown indication
     Dosage: 50 MG, QD
     Route: 042
     Dates: start: 20161209, end: 20161209
  29. RANITIDINE [Concomitant]
     Active Substance: RANITIDINE
     Dosage: 50 MG, QD
     Route: 042
     Dates: start: 20161228, end: 20161228
  30. RANITIDINE [Concomitant]
     Active Substance: RANITIDINE
     Dosage: 150 MG, QD
     Route: 048
     Dates: start: 20161210, end: 20161212
  31. RANITIDINE [Concomitant]
     Active Substance: RANITIDINE
     Dosage: 150 MG, QD
     Route: 048
     Dates: start: 20161212, end: 20161231
  32. TADALAFIL [Concomitant]
     Active Substance: TADALAFIL
     Indication: Product used for unknown indication
     Dosage: 5 MG, QD
     Route: 048
     Dates: start: 20160822, end: 20170106
  33. TRAZODONE [Concomitant]
     Active Substance: TRAZODONE HYDROCHLORIDE
     Indication: Product used for unknown indication
     Dosage: 50 MG, QD
     Route: 048
     Dates: start: 20160303, end: 20161227
  34. VANCOMYCIN [Concomitant]
     Active Substance: VANCOMYCIN
     Indication: Product used for unknown indication
     Dosage: 1 G, QD
     Route: 042
     Dates: start: 20170107, end: 20170109
  35. VINCRISTINE [Concomitant]
     Active Substance: VINCRISTINE
     Indication: Product used for unknown indication
     Dosage: 1.8 MG, QD
     Route: 042
     Dates: start: 20161228, end: 20161228
  36. VINCRISTINE [Concomitant]
     Active Substance: VINCRISTINE
     Dosage: 1.9 MG, QD
     Route: 042
     Dates: start: 20161209, end: 20161209
  37. ZOLPIDEM [Concomitant]
     Active Substance: ZOLPIDEM TARTRATE
     Indication: Product used for unknown indication
     Dosage: 10 MG, QD
     Route: 048
     Dates: start: 20151215, end: 20161227

REACTIONS (6)
  - Pneumonia [Fatal]
  - Febrile neutropenia [Not Recovered/Not Resolved]
  - Neutropenia [Recovered/Resolved]
  - Hypotension [Not Recovered/Not Resolved]
  - Abdominal pain upper [Recovered/Resolved]
  - Nausea [Recovered/Resolved]

NARRATIVE: CASE EVENT DATE: 20161219
